FAERS Safety Report 5916818-X (Version None)
Quarter: 2008Q3

REPORT INFORMATION
  Report Type: 
  Country: None (occurrence: None)
  Receive Date: 20080909
  Receipt Date: 20071023
  Transmission Date: 20090109
  Serious: Yes (Hospitalization)
  Sender: FDA-Public Use
  Company Number: 163-20785-07041002

PATIENT
  Age: 72 Year
  Sex: Male

DRUGS (3)
  1. THALOMID [Suspect]
     Indication: MULTIPLE MYELOMA
     Dosage: 100 MG, 1 IN 1 D, ORAL
     Route: 047
     Dates: start: 20070330, end: 20070401
  2. DECADRON [Concomitant]
  3. PREVACID [Concomitant]

REACTIONS (2)
  - ASTHENIA [None]
  - SOMNOLENCE [None]
